FAERS Safety Report 13977289 (Version 1)
Quarter: 2017Q3

REPORT INFORMATION
  Report Type: Spontaneous
  Country: US (occurrence: US)
  Receive Date: 20170915
  Receipt Date: 20170915
  Transmission Date: 20171128
  Serious: No
  Sender: FDA-Public Use
  Company Number: US-ROCHE-678897

PATIENT
  Age: 41 Year
  Sex: Female
  Weight: 84.1 kg

DRUGS (2)
  1. HERCEPTIN [Suspect]
     Active Substance: TRASTUZUMAB
     Indication: BREAST CANCER
     Dosage: DOSE WITHELD
     Route: 042
  2. HERCEPTIN [Suspect]
     Active Substance: TRASTUZUMAB
     Dosage: DOSE WITHHELD
     Route: 042

REACTIONS (2)
  - Lip pain [Unknown]
  - Mucosal inflammation [Unknown]
